FAERS Safety Report 9847857 (Version 2)
Quarter: 2014Q2

REPORT INFORMATION
  Report Type: Spontaneous
  Country: US (occurrence: US)
  Receive Date: 20140128
  Receipt Date: 20140402
  Transmission Date: 20141212
  Serious: Yes (Other)
  Sender: FDA-Public Use
  Company Number: US-BRISTOL-MYERS SQUIBB COMPANY-20046058

PATIENT
  Age: 55 Year
  Sex: Female
  Weight: 86.62 kg

DRUGS (8)
  1. ABILIFY [Suspect]
     Indication: BIPOLAR DISORDER
     Route: 048
     Dates: start: 20131219
  2. AMITRIPTYLINE [Concomitant]
     Dosage: 100 MG 1/DAY FOR 1 YEAR
  3. ESTRADIOL [Concomitant]
  4. VITAMIN C [Concomitant]
  5. VITAMIN E [Concomitant]
  6. VITAMIN D3 [Concomitant]
  7. BETACAROTENE [Concomitant]
  8. IRON [Concomitant]

REACTIONS (7)
  - Mania [Unknown]
  - Cellulitis [Unknown]
  - Insomnia [Unknown]
  - Feeling jittery [Unknown]
  - Restlessness [Unknown]
  - Logorrhoea [Unknown]
  - Panic attack [Unknown]
